FAERS Safety Report 6873298-8 (Version None)
Quarter: 2010Q3

REPORT INFORMATION
  Report Type: 
  Country: None (occurrence: None)
  Receive Date: 20100723
  Receipt Date: 20100712
  Transmission Date: 20110219
  Serious: Yes (Hospitalization, Other)
  Sender: FDA-Public Use
  Company Number: NL-GENENTECH-304286

PATIENT
  Age: 64 Year
  Sex: Female

DRUGS (10)
  1. RITUXIMAB [Suspect]
     Indication: B-CELL LYMPHOMA
     Dosage: 375 MG/M2, UNK
     Route: 065
  2. RITUXIMAB [Suspect]
     Dosage: 375 MG/M2, UNK
     Route: 065
  3. RITUXIMAB [Suspect]
     Dosage: 375 MG/M2, Q3M
     Route: 065
  4. CYCLOPHOSPHAMIDE [Suspect]
     Indication: B-CELL LYMPHOMA
     Dosage: 750 MG/M2, UNK
     Route: 065
  5. VINCRISTINE [Suspect]
     Indication: B-CELL LYMPHOMA
     Dosage: 1.4 MG/M2, UNK
     Route: 065
  6. PREDNISONE [Suspect]
     Indication: B-CELL LYMPHOMA
     Dosage: 40 MG/M2, UNK
     Route: 065
  7. FLUDARABINE PHOSPHATE [Suspect]
     Indication: B-CELL LYMPHOMA
     Dosage: 25 MG/M2, UNK
     Route: 065
  8. LEVOTHYROXINE SODIUM [Concomitant]
     Indication: PRODUCT USED FOR UNKNOWN INDICATION
     Dosage: UNK
  9. MIRTAZAPIN [Concomitant]
     Indication: PRODUCT USED FOR UNKNOWN INDICATION
     Dosage: UNK
  10. MOVICOLON [Concomitant]
     Indication: PRODUCT USED FOR UNKNOWN INDICATION
     Dosage: UNK

REACTIONS (6)
  - ENCEPHALITIS ENTEROVIRAL [None]
  - HAEMOGLOBIN DECREASED [None]
  - HYPOGAMMAGLOBULINAEMIA [None]
  - NEOPLASM MALIGNANT [None]
  - PLEURAL EFFUSION [None]
  - UPPER RESPIRATORY TRACT INFECTION [None]
